FAERS Safety Report 13569675 (Version 1)
Quarter: 2017Q2

REPORT INFORMATION
  Report Type: Spontaneous
  Country: US (occurrence: US)
  Receive Date: 20170522
  Receipt Date: 20170522
  Transmission Date: 20170830
  Serious: No
  Sender: FDA-Public Use
  Company Number: US-DRREDDYS-DRL/USA/16/0079905

PATIENT
  Sex: Female

DRUGS (1)
  1. ZENATANE [Suspect]
     Active Substance: ISOTRETINOIN
     Indication: ACNE
     Route: 065
     Dates: start: 20160121, end: 20160517

REACTIONS (12)
  - Acne [Recovered/Resolved]
  - Eye irritation [Unknown]
  - Alopecia [Unknown]
  - Vision blurred [Unknown]
  - Dry skin [Unknown]
  - Headache [Unknown]
  - Abdominal pain [Unknown]
  - Lip dry [Unknown]
  - Fatigue [Unknown]
  - Arthralgia [Unknown]
  - Epistaxis [Unknown]
  - Blister [Recovered/Resolved]
